FAERS Safety Report 8933259 (Version 1)
Quarter: 2012Q4

REPORT INFORMATION
  Report Type: 
  Country: US (occurrence: US)
  Receive Date: 20121129
  Receipt Date: 20121129
  Transmission Date: 20130627
  Serious: Yes (Hospitalization)
  Sender: FDA-Public Use
  Company Number: US-AMGEN-USASP2012076245

PATIENT
  Age: 69 Year
  Sex: Female

DRUGS (1)
  1. ENBREL [Suspect]
     Indication: RHEUMATOID ARTHRITIS
     Dosage: 50 mg, qwk
     Dates: start: 20080501

REACTIONS (4)
  - Cerebrovascular accident [Recovered/Resolved]
  - Hip fracture [Recovered/Resolved]
  - Upper limb fracture [Recovered/Resolved]
  - Fall [Recovered/Resolved]
